FAERS Safety Report 5123456-8 (Version None)
Quarter: 2006Q4

REPORT INFORMATION
  Report Type: 
  Country: None (occurrence: None)
  Receive Date: 20061009
  Receipt Date: 20060919
  Transmission Date: 20070319
  Serious: Yes (Hospitalization)
  Sender: FDA-Public Use
  Company Number: KR-BOEHRINGER INGELHEIM GMBH, GERMANY-2006-DE-05123GL

PATIENT
  Sex: Male

DRUGS (5)
  1. TELMISARTAN [Suspect]
     Indication: HYPERTENSION
     Route: 048
     Dates: start: 20051115, end: 20060906
  2. GLIQUIDONE [Concomitant]
     Dates: start: 20051115, end: 20060906
  3. ASPIRIN [Concomitant]
     Dates: start: 20050511, end: 20060906
  4. SPIRONOLACTONE [Concomitant]
     Dates: start: 20050906, end: 20060906
  5. WARFARIN SODIUM [Concomitant]
     Dates: start: 20050906, end: 20060511

REACTIONS (2)
  - ARTERIAL OCCLUSIVE DISEASE [None]
  - CHEST PAIN [None]
